FAERS Safety Report 25978570 (Version 2)
Quarter: 2025Q4

REPORT INFORMATION
  Report Type: Report from Study
  Country: KR (occurrence: KR)
  Receive Date: 20251030
  Receipt Date: 20251225
  Transmission Date: 20260118
  Serious: Yes (Hospitalization)
  Sender: ABBVIE
  Company Number: KR-ABBVIE-6518602

PATIENT
  Age: 50 Year
  Sex: Male
  Weight: 51 kg

DRUGS (14)
  1. RINVOQ [Suspect]
     Active Substance: UPADACITINIB
     Indication: Rheumatoid arthritis
     Route: 048
     Dates: start: 20240708, end: 20240908
  2. RINVOQ [Suspect]
     Active Substance: UPADACITINIB
     Indication: Rheumatoid arthritis
     Route: 048
     Dates: start: 20240923
  3. TEGOPRAZAN [Concomitant]
     Active Substance: TEGOPRAZAN
     Indication: Gastrointestinal disorder prophylaxis
     Dosage: 50MG
     Route: 048
     Dates: start: 20240104
  4. Risenex plus [Concomitant]
     Indication: Rheumatoid arthritis
     Route: 048
     Dates: start: 20240118
  5. METHYLPREDNISOLONE [Concomitant]
     Active Substance: METHYLPREDNISOLONE
     Indication: Rheumatoid arthritis
     Dosage: 4 MG
     Route: 048
     Dates: start: 20240222
  6. CELE V [Concomitant]
     Indication: Rheumatoid arthritis
     Dosage: 200MG
     Route: 048
     Dates: start: 20240104
  7. Mycal d [Concomitant]
     Indication: Rheumatoid arthritis
     Route: 048
     Dates: start: 20240118
  8. PROFA [Concomitant]
     Indication: Arthralgia
     Dosage: 100ML (BAG) ; 1VIAL
     Route: 042
     Dates: start: 20250117, end: 20250118
  9. METHYLPREDNISOLONE [Concomitant]
     Active Substance: METHYLPREDNISOLONE
     Indication: Rheumatoid arthritis
     Route: 048
     Dates: start: 20240222
  10. METHYLPREDNISOLONE [Concomitant]
     Active Substance: METHYLPREDNISOLONE
     Indication: Rheumatoid arthritis
     Route: 048
     Dates: start: 20240104, end: 20240221
  11. Sinil folic acid [Concomitant]
     Indication: Rheumatoid arthritis
     Route: 048
     Dates: start: 20240104
  12. ENTELON [Concomitant]
     Indication: Rheumatoid arthritis
     Dosage: 150MG
     Route: 048
     Dates: start: 20250104
  13. CELECOXIB [Concomitant]
     Active Substance: CELECOXIB
     Indication: Rheumatoid arthritis
     Dosage: 15G
     Dates: start: 20240104
  14. METHOTREXATE [Concomitant]
     Active Substance: METHOTREXATE
     Indication: Rheumatoid arthritis
     Dosage: 2.5MG
     Route: 048
     Dates: start: 20240610

REACTIONS (1)
  - Arthralgia [Recovered/Resolved]

NARRATIVE: CASE EVENT DATE: 20250116
